FAERS Safety Report 5179488-7 (Version None)
Quarter: 2006Q4

REPORT INFORMATION
  Report Type: 
  Country: None (occurrence: None)
  Receive Date: 20061219
  Receipt Date: 20061124
  Transmission Date: 20070319
  Serious: Yes (Hospitalization)
  Sender: FDA-Public Use
  Company Number: JP-ELI_LILLY_AND_COMPANY-JP200611005080

PATIENT
  Age: 72 Year
  Sex: Female
  Weight: 43 kg

DRUGS (3)
  1. GEMZAR [Suspect]
     Indication: PANCREATIC CARCINOMA STAGE IV
     Dosage: 1200 MG, OTHER
     Route: 042
     Dates: start: 20061115, end: 20061122
  2. DECADRON [Concomitant]
     Indication: PROPHYLAXIS
     Dosage: 8 MG, OTHER
     Route: 042
     Dates: start: 20061115, end: 20061122
  3. SEROTONE [Concomitant]
     Indication: PROPHYLAXIS
     Dosage: 2 ML, OTHER
     Route: 042
     Dates: start: 20061115, end: 20061122

REACTIONS (1)
  - ERYTHEMA MULTIFORME [None]
